FAERS Safety Report 5216393-1 (Version None)
Quarter: 2007Q1

REPORT INFORMATION
  Report Type: 
  Country: None (occurrence: None)
  Receive Date: 20061124
  Receipt Date: 20060918
  Transmission Date: 20070707
  Serious: Yes (Life-Threatening, Hospitalization, Other)
  Sender: FDA-Public Use
  Company Number: WAES 0609USA04246

PATIENT
  Age: 76 Year
  Sex: Male
  Weight: 54.8852 kg

DRUGS (5)
  1. VYTORIN [Suspect]
     Indication: HYPERLIPIDAEMIA
     Dosage: 10-20 MG/HS/PO
     Route: 048
  2. ACIPHEX [Concomitant]
  3. MICARDIS [Concomitant]
  4. ASPIRIN [Concomitant]
  5. COLCHICINE [Concomitant]

REACTIONS (1)
  - RHABDOMYOLYSIS [None]
